FAERS Safety Report 7667226-5 (Version None)
Quarter: 2011Q3

REPORT INFORMATION
  Report Type: 
  Country: None (occurrence: None)
  Receive Date: 20110806
  Receipt Date: 20110405
  Transmission Date: 20111222
  Serious: No
  Sender: FDA-Public Use
  Company Number: US-ABBOTT-11P-163-0716565-00

PATIENT
  Sex: Male
  Weight: 95.34 kg

DRUGS (3)
  1. NIASPAN [Suspect]
     Dosage: EACH MORNING
  2. NIASPAN [Suspect]
     Indication: BLOOD TRIGLYCERIDES INCREASED
  3. BYSTOLIC [Concomitant]
     Indication: PRODUCT USED FOR UNKNOWN INDICATION
     Dosage: 5 MG DAILY

REACTIONS (2)
  - EPISTAXIS [None]
  - FLUSHING [None]
